FAERS Safety Report 25289887 (Version 2)
Quarter: 2025Q3

REPORT INFORMATION
  Report Type: Spontaneous
  Country: US (occurrence: None)
  Receive Date: 20250509
  Receipt Date: 20250818
  Transmission Date: 20251021
  Serious: No
  Sender: INCYTE
  Company Number: US-INCYTE CORPORATION-2025IN004731

PATIENT
  Age: 20 Year

DRUGS (13)
  1. JAKAFI [Suspect]
     Active Substance: RUXOLITINIB
     Indication: Cytomegalovirus infection
     Dosage: 10 MILLIGRAM, BID
  2. JAKAFI [Suspect]
     Active Substance: RUXOLITINIB
     Dosage: 15 MILLIGRAM, BID
  3. ESCITALOPRAM [Concomitant]
     Active Substance: ESCITALOPRAM OXALATE
     Indication: Product used for unknown indication
     Route: 065
  4. PREVYMIS [Concomitant]
     Active Substance: LETERMOVIR
     Indication: Product used for unknown indication
     Route: 065
  5. TRAZODONE [Concomitant]
     Active Substance: TRAZODONE HYDROCHLORIDE
     Indication: Product used for unknown indication
     Route: 065
  6. TRAZODONE [Concomitant]
     Active Substance: TRAZODONE HYDROCHLORIDE
     Route: 065
  7. PREDNISONE [Concomitant]
     Active Substance: PREDNISONE
     Indication: Product used for unknown indication
     Route: 065
  8. CYCLOBENZAPRINE [Concomitant]
     Active Substance: CYCLOBENZAPRINE
     Indication: Product used for unknown indication
     Route: 065
  9. CLOBETASOL [Concomitant]
     Active Substance: CLOBETASOL
     Indication: Product used for unknown indication
  10. URSODIOL [Concomitant]
     Active Substance: URSODIOL
     Indication: Product used for unknown indication
     Route: 065
  11. FLUCONAZOLE [Concomitant]
     Active Substance: FLUCONAZOLE
     Indication: Product used for unknown indication
     Route: 065
  12. LEVOTHYROXINE [Concomitant]
     Active Substance: LEVOTHYROXINE
     Indication: Product used for unknown indication
     Route: 065
  13. DEXAMETHASONE [Concomitant]
     Active Substance: DEXAMETHASONE
     Indication: Product used for unknown indication
     Route: 065

REACTIONS (3)
  - White blood cell count decreased [Not Recovered/Not Resolved]
  - Off label use [Unknown]
  - Drug ineffective [Unknown]
